FAERS Safety Report 6155550-7 (Version None)
Quarter: 2009Q2

REPORT INFORMATION
  Report Type: 
  Country: None (occurrence: None)
  Receive Date: 20090413
  Receipt Date: 20090408
  Transmission Date: 20091009
  Serious: Yes (Other)
  Sender: FDA-Public Use
  Company Number: 1000005699

PATIENT
  Age: 29 Year
  Sex: Female

DRUGS (2)
  1. LEXAPRO [Suspect]
     Indication: ALOPECIA
     Dosage: 10 MG (10 MG, 1 IN 1 D)
     Dates: start: 20090101, end: 20090311
  2. LEXAPRO [Suspect]
     Indication: FATIGUE
     Dosage: 10 MG (10 MG, 1 IN 1 D)
     Dates: start: 20090101, end: 20090311

REACTIONS (12)
  - ABDOMINAL PAIN [None]
  - CHEST PAIN [None]
  - CLUMSINESS [None]
  - CONSTIPATION [None]
  - CONVULSION [None]
  - DIZZINESS [None]
  - DYSPNOEA [None]
  - FATIGUE [None]
  - NAUSEA [None]
  - SPEECH DISORDER [None]
  - TRANSIENT ISCHAEMIC ATTACK [None]
  - WEIGHT INCREASED [None]
